FAERS Safety Report 7676095-9 (Version None)
Quarter: 2011Q3

REPORT INFORMATION
  Report Type: 
  Country: None (occurrence: None)
  Receive Date: 20110811
  Receipt Date: 20110727
  Transmission Date: 20111222
  Serious: Yes (Hospitalization, Other)
  Sender: FDA-Public Use
  Company Number: PHHO2011US09886

PATIENT
  Sex: Male

DRUGS (11)
  1. FLUDARABINE PHOSPHATE [Concomitant]
  2. FLUCONAZOLE [Concomitant]
  3. CEFEPIME [Concomitant]
  4. PROLEUKIN [Suspect]
     Indication: METASTATIC MALIGNANT MELANOMA
     Dosage: 53 MIU, Q8H
     Route: 042
     Dates: start: 20110315, end: 20110320
  5. NAFCILLIN [Concomitant]
  6. CYCLOPHOSPHAMIDE [Concomitant]
     Dosage: 4370 MG, UNK
     Dates: start: 20110308, end: 20110309
  7. FILGRASTIM [Concomitant]
  8. LEVAQUIN [Concomitant]
  9. RIFAMPIN [Concomitant]
  10. PENTAMIDINE ISETHIONATE [Concomitant]
  11. DOXYCYCLINE [Concomitant]

REACTIONS (3)
  - NEOPLASM MALIGNANT [None]
  - STAPHYLOCOCCAL ABSCESS [None]
  - NEOPLASM PROGRESSION [None]
